FAERS Safety Report 10355084 (Version 1)
Quarter: 2014Q3

REPORT INFORMATION
  Report Type: Spontaneous
  Country: FR (occurrence: FR)
  Receive Date: 20140731
  Receipt Date: 20140731
  Transmission Date: 20150326
  Serious: Yes (Other)
  Sender: FDA-Public Use
  Company Number: FR-BRISTOL-MYERS SQUIBB COMPANY-21239892

PATIENT
  Age: 76 Year
  Sex: Male

DRUGS (7)
  1. COLCHICINE. [Suspect]
     Active Substance: COLCHICINE
     Indication: PERICARDITIS
     Dosage: COLCHICINE OPOCALCIUM ? 1 TABLET EVERY OTHER DAY
     Route: 048
     Dates: start: 20140627, end: 20140704
  2. SERESTA [Concomitant]
     Active Substance: OXAZEPAM
  3. NORSET [Suspect]
     Active Substance: MIRTAZAPINE
     Route: 048
     Dates: start: 20140627, end: 20140707
  4. COUMADINE [Suspect]
     Active Substance: WARFARIN SODIUM
     Dosage: 1DF:2 MG (WARFARIN) 0.5/D
     Route: 048
     Dates: start: 20140626, end: 20140703
  5. INEXIUM [Concomitant]
     Active Substance: ESOMEPRAZOLE
  6. HEPARIN [Suspect]
     Active Substance: HEPARIN SODIUM
     Route: 042
     Dates: start: 20140625, end: 20140703
  7. IMODIUM [Concomitant]
     Active Substance: LOPERAMIDE HYDROCHLORIDE

REACTIONS (1)
  - Pancytopenia [Recovered/Resolved]

NARRATIVE: CASE EVENT DATE: 20140628
